FAERS Safety Report 17995265 (Version 10)
Quarter: 2021Q2

REPORT INFORMATION
  Report Type: Report from Study
  Country: US (occurrence: US)
  Receive Date: 20200708
  Receipt Date: 20210603
  Transmission Date: 20210717
  Serious: Yes (Hospitalization, Other)
  Sender: FDA-Public Use
  Company Number: US-TAKEDA-2019TUS054222

PATIENT
  Age: 74 Year
  Sex: Male
  Weight: 93 kg

DRUGS (5)
  1. BORTEZOMIB. [Suspect]
     Active Substance: BORTEZOMIB
     Indication: PLASMA CELL MYELOMA
     Dosage: 2.7 MILLIGRAM, 1/WEEK
     Route: 058
     Dates: start: 20170823, end: 20171213
  2. DARATUMUMAB [Suspect]
     Active Substance: DARATUMUMAB
     Indication: PLASMA CELL MYELOMA
     Dosage: 16 MILLIGRAM/KILOGRAM
     Route: 042
     Dates: start: 20190611, end: 20190907
  3. DECADRON [Concomitant]
     Active Substance: DEXAMETHASONE
     Dosage: 10 MILLIGRAM
     Route: 042
     Dates: start: 20190702, end: 20190906
  4. BORTEZOMIB. [Suspect]
     Active Substance: BORTEZOMIB
     Dosage: 1.3 MILLIGRAM/SQ. METER
     Route: 058
     Dates: start: 20190611, end: 20210129
  5. DECADRON [Concomitant]
     Active Substance: DEXAMETHASONE
     Indication: PLASMA CELL MYELOMA
     Dosage: 20 MILLIGRAM
     Route: 042
     Dates: start: 20190611, end: 20190621

REACTIONS (11)
  - Pneumonia [Recovered/Resolved]
  - Cardiac failure congestive [Recovered/Resolved]
  - Ventricular tachycardia [Recovered/Resolved]
  - Abscess limb [Recovered/Resolved]
  - Bursitis infective [Recovered/Resolved]
  - Rash pustular [Recovered/Resolved]
  - Cellulitis [Recovered/Resolved]
  - Atrial fibrillation [Recovered/Resolved]
  - Skin ulcer [Recovered/Resolved]
  - Deep vein thrombosis [Recovering/Resolving]
  - Hyperglycaemia [Recovered/Resolved]

NARRATIVE: CASE EVENT DATE: 20190430
